FAERS Safety Report 10210610 (Version 1)
Quarter: 2014Q2

REPORT INFORMATION
  Report Type: Spontaneous
  Country: US (occurrence: None)
  Receive Date: 20140528
  Receipt Date: 20140528
  Transmission Date: 20141212
  Serious: Yes (Death)
  Sender: FDA-Public Use
  Company Number: 2014P1004267

PATIENT
  Age: 39 Year
  Sex: Male

DRUGS (2)
  1. DILTIAZEM [Suspect]
  2. METOPROLOL [Suspect]

REACTIONS (7)
  - Unresponsive to stimuli [None]
  - Cardiac arrest [None]
  - Brain oedema [None]
  - Hyperlipidaemia [None]
  - Laboratory test interference [None]
  - Toxicity to various agents [None]
  - Overdose [None]
